FAERS Safety Report 9322530 (Version 1)
Quarter: 2013Q2

REPORT INFORMATION
  Report Type: Spontaneous
  Country: AU (occurrence: AU)
  Receive Date: 20130531
  Receipt Date: 20130531
  Transmission Date: 20140414
  Serious: Yes (Death, Life-Threatening, Hospitalization)
  Sender: FDA-Public Use
  Company Number: AU-ASTRAZENECA-2013SE37565

PATIENT
  Age: 26 Year
  Sex: Female

DRUGS (3)
  1. SEROQUEL XR [Suspect]
     Route: 048
  2. SEROQUEL XR [Suspect]
     Route: 048
  3. IMPLANON [Concomitant]

REACTIONS (4)
  - Overdose [Unknown]
  - Cardiac arrest [Fatal]
  - Pulmonary embolism [Unknown]
  - Hallucination, olfactory [Unknown]
